FAERS Safety Report 13508965 (Version 1)
Quarter: 2017Q2

REPORT INFORMATION
  Report Type: Spontaneous
  Country: CN (occurrence: CN)
  Receive Date: 20170503
  Receipt Date: 20170503
  Transmission Date: 20170830
  Serious: Yes (Life-Threatening, Other)
  Sender: FDA-Public Use
  Company Number: CN-SUN PHARMACEUTICAL INDUSTRIES LTD-2017RR-139345

PATIENT
  Age: 52 Year
  Sex: Female

DRUGS (14)
  1. ERLOTINIB [Suspect]
     Active Substance: ERLOTINIB
     Indication: METASTASES TO LYMPH NODES
     Dosage: UNK
     Route: 065
     Dates: start: 201409
  2. BEVACIZUMAB [Suspect]
     Active Substance: BEVACIZUMAB
     Indication: LUNG ADENOCARCINOMA STAGE III
     Dosage: UNK
     Route: 065
     Dates: start: 2015
  3. DOCETAXEL. [Suspect]
     Active Substance: DOCETAXEL
     Indication: LUNG ADENOCARCINOMA STAGE III
     Dosage: UNK
     Route: 065
     Dates: start: 2015
  4. GEMCITABINE [Suspect]
     Active Substance: GEMCITABINE\GEMCITABINE HYDROCHLORIDE
     Indication: LUNG ADENOCARCINOMA STAGE III
     Route: 065
     Dates: start: 2014
  5. BEVACIZUMAB [Suspect]
     Active Substance: BEVACIZUMAB
     Indication: METASTASES TO LYMPH NODES
     Dosage: UNK
     Route: 065
     Dates: start: 2015
  6. NEDAPLATIN [Suspect]
     Active Substance: NEDAPLATIN
     Indication: METASTASES TO LYMPH NODES
     Route: 065
     Dates: start: 2015
  7. PEMETREXED. [Suspect]
     Active Substance: PEMETREXED
     Indication: METASTASES TO LYMPH NODES
     Dosage: UNK
     Route: 065
     Dates: start: 2015
  8. GEMCITABINE [Suspect]
     Active Substance: GEMCITABINE\GEMCITABINE HYDROCHLORIDE
     Indication: METASTASES TO LYMPH NODES
     Dates: start: 2014
  9. NEDAPLATIN [Suspect]
     Active Substance: NEDAPLATIN
     Indication: LUNG ADENOCARCINOMA STAGE III
     Dosage: UNK
     Route: 065
     Dates: start: 2015
  10. CISPLATIN. [Suspect]
     Active Substance: CISPLATIN
     Indication: METASTASES TO LYMPH NODES
     Dosage: UNK
     Route: 065
     Dates: start: 2014
  11. CISPLATIN. [Suspect]
     Active Substance: CISPLATIN
     Indication: LUNG ADENOCARCINOMA STAGE III
     Dosage: UNK
     Route: 065
     Dates: start: 2014
  12. ERLOTINIB [Suspect]
     Active Substance: ERLOTINIB
     Indication: LUNG ADENOCARCINOMA STAGE III
     Dosage: UNK
     Route: 065
     Dates: start: 201409
  13. DOCETAXEL. [Suspect]
     Active Substance: DOCETAXEL
     Indication: METASTASES TO LYMPH NODES
     Dosage: UNK
     Route: 065
     Dates: start: 2015
  14. PEMETREXED. [Suspect]
     Active Substance: PEMETREXED
     Indication: LUNG ADENOCARCINOMA STAGE III
     Route: 065
     Dates: start: 2015

REACTIONS (1)
  - Treatment failure [Unknown]
